FAERS Safety Report 6835358-7 (Version None)
Quarter: 2010Q3

REPORT INFORMATION
  Report Type: 
  Country: None (occurrence: None)
  Receive Date: 20100713
  Receipt Date: 20100706
  Transmission Date: 20110219
  Serious: Yes (Other)
  Sender: FDA-Public Use
  Company Number: CA-B.I. PHARMACEUTICALS,INC./RIDGEFIELD-2010-DE-03604GD

PATIENT
  Age: 79 Year
  Sex: Male

DRUGS (7)
  1. TELMISARTAN [Suspect]
  2. PREDNISONE [Suspect]
  3. AZATHIOPRINE [Suspect]
  4. HYDROCHLOROTHIAZIDE [Suspect]
  5. FAMCICLOVIR [Suspect]
  6. CEPHALEXIN [Suspect]
  7. BEVACIZUMAB [Suspect]
     Indication: EYE DISORDER
     Route: 031

REACTIONS (5)
  - BACTERIAL INFECTION [None]
  - FACE OEDEMA [None]
  - FACIAL PAIN [None]
  - HERPES ZOSTER [None]
  - RASH [None]
